FAERS Safety Report 10982319 (Version 2)
Quarter: 2021Q3

REPORT INFORMATION
  Report Type: Spontaneous
  Country: US (occurrence: US)
  Receive Date: 20150403
  Receipt Date: 20210713
  Transmission Date: 20211014
  Serious: Yes (Hospitalization, Other)
  Sender: FDA-Public Use
  Company Number: US-PFIZER INC-2014097009

PATIENT
  Age: 70 Year
  Sex: Female
  Weight: 82.54 kg

DRUGS (4)
  1. GLUCOTROL XL [Suspect]
     Active Substance: GLIPIZIDE
     Indication: DIABETES MELLITUS
     Dosage: 2.50 MG
  2. TOPROL XL [Concomitant]
     Active Substance: METOPROLOL SUCCINATE
     Indication: HYPERTENSION
     Dosage: UNK
  3. GLUCOTROL XL [Suspect]
     Active Substance: GLIPIZIDE
     Dosage: 5 MG
  4. GLUCOTROL XL [Suspect]
     Active Substance: GLIPIZIDE
     Dosage: 10 MG, 1X/DAY
     Route: 048

REACTIONS (10)
  - Vertigo [Not Recovered/Not Resolved]
  - Memory impairment [Unknown]
  - Aneurysm [Not Recovered/Not Resolved]
  - Urinary tract infection [Unknown]
  - Illness [Unknown]
  - Weight increased [Unknown]
  - Body height decreased [Unknown]
  - Depression [Unknown]
  - Hypertension [Unknown]
  - Road traffic accident [Unknown]

NARRATIVE: CASE EVENT DATE: 2020
